FAERS Safety Report 17141101 (Version 1)
Quarter: 2019Q4

REPORT INFORMATION
  Report Type: Spontaneous
  Country: IL (occurrence: IL)
  Receive Date: 20191211
  Receipt Date: 20191211
  Transmission Date: 20200122
  Serious: Yes (Hospitalization)
  Sender: FDA-Public Use
  Company Number: US-SLATE RUN PHARMACEUTICALS-SLTR-AE-19-116

PATIENT
  Age: 89 Year
  Sex: Female

DRUGS (10)
  1. 70436-019-82 AZITHROMYCIN FOR INJECTION DRY VIAL USP 500 MG [Suspect]
     Active Substance: AZITHROMYCIN
     Indication: ANTIBIOTIC THERAPY
     Route: 048
  2. METHYLPREDNISOLONE. [Concomitant]
     Active Substance: METHYLPREDNISOLONE
     Indication: UPPER RESPIRATORY TRACT INFECTION
     Route: 042
  3. FEBUXOSTAT. [Concomitant]
     Active Substance: FEBUXOSTAT
     Indication: TUMOUR LYSIS SYNDROME
  4. ASPIRIN. [Concomitant]
     Active Substance: ASPIRIN
     Indication: ACUTE MYOCARDIAL INFARCTION
  5. FUROSEMIDE. [Concomitant]
     Active Substance: FUROSEMIDE
     Indication: UPPER RESPIRATORY TRACT INFECTION
     Route: 042
  6. FLUIDS WITH BICARBONATE [Concomitant]
     Indication: TUMOUR LYSIS SYNDROME
     Route: 042
  7. CEFTRIAXONE. [Concomitant]
     Active Substance: CEFTRIAXONE
     Indication: UPPER RESPIRATORY TRACT INFECTION
  8. CLOPIDOGREL [Concomitant]
     Active Substance: CLOPIDOGREL BISULFATE
     Indication: ACUTE MYOCARDIAL INFARCTION
  9. PREDNISONE. [Concomitant]
     Active Substance: PREDNISONE
     Indication: UPPER RESPIRATORY TRACT INFECTION
     Route: 048
  10. SEVELAMER [Concomitant]
     Active Substance: SEVELAMER
     Indication: TUMOUR LYSIS SYNDROME

REACTIONS (11)
  - Anxiety [Unknown]
  - C-reactive protein increased [Unknown]
  - Sinus tachycardia [Unknown]
  - Hyperhidrosis [Unknown]
  - Dyspnoea [Unknown]
  - Acute myocardial infarction [Unknown]
  - Lymphadenopathy [Unknown]
  - Leukocytosis [Unknown]
  - Pneumonia [Unknown]
  - Blood immunoglobulin G decreased [Unknown]
  - Tumour lysis syndrome [Unknown]
